FAERS Safety Report 5376709-2 (Version None)
Quarter: 2007Q2

REPORT INFORMATION
  Report Type: 
  Country: None (occurrence: None)
  Receive Date: 20070629
  Receipt Date: 20070629
  Transmission Date: 20071010
  Serious: Yes (Other)
  Sender: FDA-Public Use
  Company Number: None

PATIENT
  Age: 37 Year
  Sex: Female
  Weight: 58.9676 kg

DRUGS (2)
  1. VIVAGLOBIN [Suspect]
     Indication: IMMUNODEFICIENCY COMMON VARIABLE
     Dosage: 20 CC -3.2 GRAMS- INTO 2 SITES WEEKLY SQ
     Route: 058
     Dates: start: 20070611, end: 20070611
  2. VIVAGLOBIN [Suspect]
     Indication: IMMUNODEFICIENCY COMMON VARIABLE
     Dosage: 20 CC -3.2 GRAMS- INTO 2 SITES WEEKLY SQ
     Route: 058
     Dates: start: 20070626, end: 20070626

REACTIONS (3)
  - INFUSION SITE ERYTHEMA [None]
  - INFUSION SITE PAIN [None]
  - INFUSION SITE SWELLING [None]
